FAERS Safety Report 6502958-3 (Version None)
Quarter: 2009Q4

REPORT INFORMATION
  Report Type: 
  Country: None (occurrence: None)
  Receive Date: 20091217
  Receipt Date: 20091208
  Transmission Date: 20100525
  Serious: Yes (Other)
  Sender: FDA-Public Use
  Company Number: PHHY2009JP48370

PATIENT
  Age: 1 Day
  Weight: 3.448 kg

DRUGS (14)
  1. DIOVAN [Suspect]
     Indication: HYPERTENSION
     Dosage: MATERNAL DOSE 40 MG/DAY
     Route: 064
     Dates: start: 20071227, end: 20090215
  2. BENZODIAZEPINES [Suspect]
  3. BENET [Concomitant]
     Dosage: MATERNAL DOSE 2.5 MG
     Route: 064
     Dates: start: 20071227, end: 20090215
  4. LANTUS [Concomitant]
     Dosage: MATERNAL DOSE 36 IU
     Route: 064
     Dates: start: 20071227
  5. MERCAZOLE [Concomitant]
     Dosage: MATERNAL DOSE 10 MG
     Route: 064
     Dates: start: 20071227
  6. ROHYPNOL [Concomitant]
     Dosage: UNK
     Route: 064
  7. LORAZEPAM [Concomitant]
     Dosage: UNK
     Route: 064
  8. ABILIFY [Concomitant]
     Dosage: UNK
     Route: 064
  9. RESLIN [Concomitant]
     Dosage: UNK
     Route: 064
  10. LUVOX [Concomitant]
     Dosage: UNK
     Route: 064
  11. TASMOLIN [Concomitant]
     Dosage: MATERNAL DOSE 34 IU
     Route: 064
  12. NOVORAPID [Concomitant]
     Route: 064
  13. THIAMAZOLE [Concomitant]
     Dosage: UNK
     Route: 064
  14. RISEDRONATE SODIUM [Concomitant]
     Route: 064

REACTIONS (5)
  - DRUG EXPOSURE DURING PREGNANCY [None]
  - HYPOGLYCAEMIA [None]
  - NEONATAL ASPHYXIA [None]
  - NEONATAL ASPIRATION [None]
  - RESUSCITATION [None]
